FAERS Safety Report 6725676-5 (Version None)
Quarter: 2010Q2

REPORT INFORMATION
  Report Type: 
  Country: None (occurrence: None)
  Receive Date: 20100514
  Receipt Date: 20100504
  Transmission Date: 20101027
  Serious: Yes (Other)
  Sender: FDA-Public Use
  Company Number: JP-JNJFOC-20100502932

PATIENT
  Age: 62 Year
  Sex: Female

DRUGS (3)
  1. LEVOCABASTINE [Suspect]
     Indication: CONJUNCTIVAL HYPERAEMIA
     Route: 047
  2. OFLOXACIN [Suspect]
     Indication: CONJUNCTIVAL HYPERAEMIA
     Route: 065
  3. DEXAMETHASONE SODIUM SULFATE [Suspect]
     Indication: CONJUNCTIVAL HYPERAEMIA
     Route: 065

REACTIONS (3)
  - EYE INFECTION FUNGAL [None]
  - OCULAR NEOPLASM [None]
  - TREATMENT FAILURE [None]
